FAERS Safety Report 18910449 (Version 1)
Quarter: 2021Q1

REPORT INFORMATION
  Report Type: Spontaneous
  Country: IT (occurrence: IT)
  Receive Date: 20210218
  Receipt Date: 20210218
  Transmission Date: 20210420
  Serious: Yes (Other)
  Sender: FDA-Public Use
  Company Number: IT-LUPIN PHARMACEUTICALS INC.-2021-02007

PATIENT
  Age: 43 Year
  Sex: Male

DRUGS (9)
  1. PIMECROLIMUS. [Suspect]
     Active Substance: PIMECROLIMUS
     Indication: PUSTULAR PSORIASIS
     Dosage: UNK
     Route: 061
  2. ACITRETIN. [Suspect]
     Active Substance: ACITRETIN
     Indication: PUSTULAR PSORIASIS
     Dosage: 35 MILLIGRAM, QD
     Route: 065
  3. CLOBETASOL [Suspect]
     Active Substance: CLOBETASOL
     Indication: PUSTULAR PSORIASIS
     Dosage: UNK CREAM
     Route: 065
  4. CALCIPOTRIENE. [Suspect]
     Active Substance: CALCIPOTRIENE
     Indication: PUSTULAR PSORIASIS
     Dosage: UNK CREAM
     Route: 061
  5. SECUKINUMAB. [Suspect]
     Active Substance: SECUKINUMAB
     Indication: PUSTULAR PSORIASIS
     Dosage: 300 MILLIGRAM (IN WEEKS 0, 1, 2, 3, AND 4)
     Route: 058
  6. ADALIMUMAB [Concomitant]
     Active Substance: ADALIMUMAB
     Indication: PUSTULAR PSORIASIS
     Dosage: 40 MILLIGRAM (IN WEEKS 0 AND 1)
     Route: 058
  7. ADALIMUMAB [Concomitant]
     Active Substance: ADALIMUMAB
     Dosage: 40 MILLIGRAM
     Route: 058
  8. SECUKINUMAB. [Suspect]
     Active Substance: SECUKINUMAB
     Dosage: 300 MILLIGRAM
     Route: 058
  9. TAZAROTENE. [Suspect]
     Active Substance: TAZAROTENE
     Indication: PUSTULAR PSORIASIS
     Dosage: UNK
     Route: 061

REACTIONS (2)
  - Therapy partial responder [Unknown]
  - Drug ineffective [Unknown]
